FAERS Safety Report 14997278 (Version 1)
Quarter: 2018Q2

REPORT INFORMATION
  Report Type: Report from Study
  Country: DE (occurrence: DE)
  Receive Date: 20180611
  Receipt Date: 20180611
  Transmission Date: 20180711
  Serious: Yes (Death, Hospitalization)
  Sender: FDA-Public Use
  Company Number: DE-MYLANLABS-2018M1037757

PATIENT
  Age: 60 Year
  Sex: Female
  Weight: 57 kg

DRUGS (28)
  1. CAPECITABINE. [Suspect]
     Active Substance: CAPECITABINE
     Dosage: 3300 MG, 3XW
     Route: 048
     Dates: start: 20131016, end: 20131029
  2. BEVACIZUMAB. [Suspect]
     Active Substance: BEVACIZUMAB
     Indication: BREAST CANCER
     Dosage: 855 MG, UNK
     Dates: start: 20130513, end: 20130513
  3. CAPECITABINE. [Suspect]
     Active Substance: CAPECITABINE
     Dosage: 3300 MG, UNK
     Route: 048
     Dates: start: 20130522, end: 20130604
  4. CLINDASOL                          /00166002/ [Concomitant]
     Active Substance: CLINDAMYCIN HYDROCHLORIDE
     Indication: TOOTHACHE
     Dosage: UNK
     Route: 048
  5. IBUFLAM                            /00109201/ [Concomitant]
     Active Substance: IBUPROFEN
     Indication: NEURITIS
     Dosage: UNK
     Route: 048
  6. CAPECITABINE. [Suspect]
     Active Substance: CAPECITABINE
     Dosage: 3300 MG, 3XW
     Route: 048
     Dates: start: 20130612, end: 20130625
  7. VITAMIN B6 [Concomitant]
     Active Substance: PYRIDOXINE HYDROCHLORIDE
     Indication: PRODUCT USED FOR UNKNOWN INDICATION
     Dosage: UNK
  8. RANITIDIN [Concomitant]
     Active Substance: RANITIDINE HYDROCHLORIDE
     Indication: PROPHYLAXIS AGAINST GASTROINTESTINAL ULCER
     Dosage: UNK
     Route: 048
  9. CAPECITABINE. [Suspect]
     Active Substance: CAPECITABINE
     Dosage: 3300 MG, 3XW
     Route: 048
     Dates: start: 20130703, end: 20130716
  10. CAPECITABINE. [Suspect]
     Active Substance: CAPECITABINE
     Dosage: 1600 MG, 3XW
     Route: 048
     Dates: start: 20130219, end: 20140403
  11. CAPECITABINE. [Suspect]
     Active Substance: CAPECITABINE
     Dosage: 1600 MG, UNK
     Route: 048
  12. OMEP                               /00661201/ [Concomitant]
     Active Substance: OMEPRAZOLE
     Indication: DYSPEPSIA
     Dosage: UNK
     Route: 048
  13. CAPECITABINE. [Suspect]
     Active Substance: CAPECITABINE
     Dosage: 3300 MG, 3XW
     Route: 048
     Dates: start: 20131106, end: 20131119
  14. CAPECITABINE. [Suspect]
     Active Substance: CAPECITABINE
     Dosage: 1600 MG, 3XW
     Route: 048
     Dates: start: 20140312, end: 20140325
  15. CAPECITABINE. [Suspect]
     Active Substance: CAPECITABINE
     Dosage: 1600 MG, 3XW
     Route: 048
     Dates: start: 20140402, end: 20140415
  16. CAPECITABINE. [Suspect]
     Active Substance: CAPECITABINE
     Dosage: 3300 MG, 3XW
     Route: 048
     Dates: start: 20130904, end: 20130917
  17. CAPECITABINE. [Suspect]
     Active Substance: CAPECITABINE
     Dosage: 3300 MG, 3XW
     Route: 048
     Dates: start: 20130925, end: 20131008
  18. BEVACIZUMAB. [Suspect]
     Active Substance: BEVACIZUMAB
     Dosage: 840 MG, 3XW
     Route: 042
     Dates: start: 20130826, end: 20130826
  19. BEVACIZUMAB. [Suspect]
     Active Substance: BEVACIZUMAB
     Dosage: 900 MG, UNK
     Route: 042
     Dates: start: 20140502, end: 20140502
  20. LETROZOLE. [Concomitant]
     Active Substance: LETROZOLE
     Indication: BREAST CANCER METASTATIC
     Dosage: UNK
     Route: 048
  21. MORPHIN                            /00036302/ [Concomitant]
     Active Substance: MORPHINE SULFATE
     Indication: PRODUCT USED FOR UNKNOWN INDICATION
     Dosage: UNK
  22. CAPECITABINE. [Suspect]
     Active Substance: CAPECITABINE
     Indication: PRODUCT USED FOR UNKNOWN INDICATION
     Dosage: 1000 MG/M2, UNK
     Dates: start: 20130501
  23. CAPECITABINE. [Suspect]
     Active Substance: CAPECITABINE
     Dosage: 3300 MG, 3XW
     Route: 048
     Dates: start: 20131127, end: 20131210
  24. CAPECITABINE. [Suspect]
     Active Substance: CAPECITABINE
     Dosage: 3300 MG, 3XW
     Route: 048
     Dates: start: 20130724, end: 20130806
  25. CAPECITABINE. [Suspect]
     Active Substance: CAPECITABINE
     Dosage: 1600 MG, 3XW
     Route: 048
     Dates: start: 20140108, end: 20140121
  26. CAPECITABINE. [Suspect]
     Active Substance: CAPECITABINE
     Dosage: 1600 MG, 3XW
     Route: 048
     Dates: start: 20140129, end: 20140211
  27. CAPECITABINE. [Suspect]
     Active Substance: CAPECITABINE
     Dosage: 1600 MG, 3XW
     Route: 048
     Dates: start: 20140423, end: 20140506
  28. NOVALGINA [Concomitant]
     Active Substance: METAMIZOLE SODIUM
     Indication: NEURITIS
     Dosage: 500 MG, UNK
     Route: 048

REACTIONS (2)
  - Cardiac failure [Recovered/Resolved]
  - Multiple organ dysfunction syndrome [Fatal]

NARRATIVE: CASE EVENT DATE: 20130925
